FAERS Safety Report 9433168 (Version 3)
Quarter: 2013Q4

REPORT INFORMATION
  Report Type: Spontaneous
  Country: US (occurrence: US)
  Receive Date: 20130731
  Receipt Date: 20131211
  Transmission Date: 20140711
  Serious: Yes (Hospitalization, Congenital Anomaly)
  Sender: FDA-Public Use
  Company Number: US-GLAXOSMITHKLINE-A1035482A

PATIENT
  Age: 0 Day
  Sex: Male

DRUGS (2)
  1. BUPROPION HCL [Suspect]
     Indication: DEPRESSION
     Dosage: 150MG UNKNOWN
     Route: 064
  2. WELLBUTRIN [Suspect]
     Indication: DEPRESSION
     Route: 064

REACTIONS (6)
  - Ventricular septal defect [Unknown]
  - Transposition of the great vessels [Unknown]
  - Patent ductus arteriosus [Unknown]
  - Atrial septal defect [Unknown]
  - Congenital anomaly [Unknown]
  - Foetal exposure during pregnancy [Unknown]
